FAERS Safety Report 16797082 (Version 4)
Quarter: 2019Q4

REPORT INFORMATION
  Report Type: Spontaneous
  Country: US (occurrence: US)
  Receive Date: 20190911
  Receipt Date: 20191031
  Transmission Date: 20200122
  Serious: No
  Sender: FDA-Public Use
  Company Number: US-MTPC-MTDA2019-0070841

PATIENT

DRUGS (5)
  1. RILUZOLE. [Concomitant]
     Active Substance: RILUZOLE
     Dosage: HALF TAB, BID
     Route: 065
  2. BACLOFEN. [Concomitant]
     Active Substance: BACLOFEN
     Indication: PRODUCT USED FOR UNKNOWN INDICATION
     Dosage: 10 MILLIGRAM, TID
     Route: 065
     Dates: start: 201906
  3. RADICAVA [Suspect]
     Active Substance: EDARAVONE
     Indication: AMYOTROPHIC LATERAL SCLEROSIS
     Dosage: 60 MG OVER 60 MIN, QD FOR 14 DAYS FOLLOWED BY A 14-DAY DRUG-FREE PERIOD
     Route: 042
     Dates: start: 20190821, end: 20190903
  4. RILUZOLE. [Concomitant]
     Active Substance: RILUZOLE
     Indication: PRODUCT USED FOR UNKNOWN INDICATION
     Dosage: 1 TAB, BID
     Route: 065
  5. ASPIRIN. [Concomitant]
     Active Substance: ASPIRIN
     Indication: PRODUCT USED FOR UNKNOWN INDICATION
     Dosage: UNK
     Route: 065

REACTIONS (8)
  - Fall [Unknown]
  - Head injury [Unknown]
  - Disease complication [Unknown]
  - Constipation [Unknown]
  - Condition aggravated [Unknown]
  - Asthenia [Unknown]
  - Product dose omission [Unknown]
  - Insomnia [Unknown]
